FAERS Safety Report 22812109 (Version 2)
Quarter: 2024Q4

REPORT INFORMATION
  Report Type: Spontaneous
  Country: IT (occurrence: IT)
  Receive Date: 20230811
  Receipt Date: 20241017
  Transmission Date: 20250115
  Serious: Yes (Death, Hospitalization, Other)
  Sender: CELLTRION
  Company Number: IT-CELLTRION INC.-2023IT015686

PATIENT

DRUGS (80)
  1. RITUXIMAB [Suspect]
     Active Substance: RITUXIMAB
     Indication: Diffuse large B-cell lymphoma stage IV
     Dosage: UNK
  2. RITUXIMAB [Suspect]
     Active Substance: RITUXIMAB
     Dosage: 375 MG/M2 EVERY 3 WEEKS; ON 07/JUL/2022 AT 1:30 PM TO 04:30 PM, SHE RECEIVED MOST RECENT DOSE 375 MG
     Route: 042
     Dates: start: 20220527
  3. PREDNISONE [Suspect]
     Active Substance: PREDNISONE
     Indication: Diffuse large B-cell lymphoma stage IV
     Dosage: 100 MG; ON 11/JUL/2022, SHE RECEIVED MOST RECENT DOSE 100 MG OF STUDY DRUG PREDNISONE PRIOR TO SAE/A
     Route: 048
     Dates: start: 20220528
  4. GLOFITAMAB [Suspect]
     Active Substance: GLOFITAMAB
     Indication: Diffuse large B-cell lymphoma stage IV
     Dosage: 2.5 MG EVERY 3 WEEKS; ON 14/JUL/2022 FROM 12:45 PM TO 04:45 PM, SHE RECEIVED MOST RECENT DOSE 30 MG
     Route: 042
     Dates: start: 20220623
  5. DOXORUBICIN [Suspect]
     Active Substance: DOXORUBICIN
     Indication: Diffuse large B-cell lymphoma stage IV
     Dosage: UNK
  6. DOXORUBICIN [Suspect]
     Active Substance: DOXORUBICIN
     Dosage: 50 MG/M2 EVERY 3 WEEKS; ON 07/JUL/2022 AT 05:30 PM TO 05:35PM, SHE RECEIVED MOST RECENT DOSE 50 MG/M
     Route: 042
     Dates: start: 20220527
  7. METHYLPREDNISOLONE [Suspect]
     Active Substance: METHYLPREDNISOLONE
     Indication: Diffuse large B-cell lymphoma stage IV
     Dosage: 80 MG; ON 07/JUL/2022 AT 10:30 AM, SHE RECEIVED MOST RECENT DOSE 80 MG OF STUDY DRUG METHYLPREDNISOL
     Route: 048
     Dates: start: 20220527
  8. CYCLOPHOSPHAMIDE [Suspect]
     Active Substance: CYCLOPHOSPHAMIDE
     Indication: Diffuse large B-cell lymphoma stage IV
  9. CYCLOPHOSPHAMIDE [Suspect]
     Active Substance: CYCLOPHOSPHAMIDE
     Dosage: UNK
  10. CYCLOPHOSPHAMIDE [Suspect]
     Active Substance: CYCLOPHOSPHAMIDE
     Dosage: 750 MG/M2 EVERY 3 WEEKS; ON 07/JUL/2022 AT 04:30 PM TO 5:30 PM, SHE RECEIVED MOST RECENT DOSE 750 MG
     Route: 042
     Dates: start: 20220527
  11. ACETAMINOPHEN [Concomitant]
     Active Substance: ACETAMINOPHEN
     Dosage: 1000 MG
     Dates: start: 20220629, end: 20220629
  12. ACETAMINOPHEN [Concomitant]
     Active Substance: ACETAMINOPHEN
     Dosage: 1000 MG
     Dates: start: 20220707, end: 20220707
  13. ACETAMINOPHEN [Concomitant]
     Active Substance: ACETAMINOPHEN
     Dosage: 1000 MG
     Dates: start: 20220714, end: 20220714
  14. ACETAMINOPHEN [Concomitant]
     Active Substance: ACETAMINOPHEN
     Dosage: 1000 MG
     Dates: start: 20220804, end: 20220804
  15. ACETAMINOPHEN [Concomitant]
     Active Substance: ACETAMINOPHEN
     Dosage: 1000 MG
     Dates: start: 20220812, end: 20220812
  16. ACETAMINOPHEN [Concomitant]
     Active Substance: ACETAMINOPHEN
     Dosage: 1000 MG
     Dates: start: 20220829, end: 20220829
  17. ACETAMINOPHEN [Concomitant]
     Active Substance: ACETAMINOPHEN
     Dosage: 1000 MG
     Dates: start: 20220905, end: 20220905
  18. ACETAMINOPHEN [Concomitant]
     Active Substance: ACETAMINOPHEN
     Dosage: 1000 MG
     Dates: start: 20220921, end: 20220921
  19. CLINDAMYCIN [Concomitant]
     Active Substance: CLINDAMYCIN
     Indication: Stenotrophomonas infection
     Dosage: UNK
     Dates: start: 20221011, end: 20221013
  20. BACTRIM [Concomitant]
     Active Substance: SULFAMETHOXAZOLE\TRIMETHOPRIM
     Indication: Stenotrophomonas infection
     Dosage: UNK
     Dates: start: 20221011, end: 20221023
  21. AZITHROMYCIN [Concomitant]
     Active Substance: AZITHROMYCIN
     Dosage: UNK
     Dates: start: 20220808, end: 20220814
  22. GANCICLOVIR [Concomitant]
     Active Substance: GANCICLOVIR
     Indication: Cytomegalovirus infection
     Dosage: UNK
     Dates: start: 20220928, end: 20221015
  23. AMPHOTERICIN B [Concomitant]
     Active Substance: AMPHOTERICIN B
     Indication: Stenotrophomonas infection
     Dosage: UNK
     Dates: start: 20221011
  24. PALONOSETRON [Concomitant]
     Active Substance: PALONOSETRON
     Dosage: 0.5 MG
     Dates: start: 20220707, end: 20220707
  25. PALONOSETRON [Concomitant]
     Active Substance: PALONOSETRON
     Dosage: 0.5 MG
     Dates: start: 20220804, end: 20220804
  26. PALONOSETRON [Concomitant]
     Active Substance: PALONOSETRON
     Dosage: 0.5 MG
     Dates: start: 20220829, end: 20220829
  27. PALONOSETRON [Concomitant]
     Active Substance: PALONOSETRON
     Dosage: 0.5 MG
     Dates: start: 20220921, end: 20220921
  28. PANTOPRAZOLE SODIUM [Concomitant]
     Active Substance: PANTOPRAZOLE SODIUM
     Dosage: 40 MG
     Dates: start: 20220528, end: 20221025
  29. CANRENONE [Concomitant]
     Active Substance: CANRENONE
     Indication: Oedema peripheral
     Dosage: 200 MG
     Dates: start: 20220813, end: 20220815
  30. FILGRASTIM [Concomitant]
     Active Substance: FILGRASTIM
     Indication: Neutropenia
     Dosage: UNK
     Dates: start: 20220712, end: 20220718
  31. FILGRASTIM [Concomitant]
     Active Substance: FILGRASTIM
     Dosage: UNK
     Dates: start: 20220809, end: 20220813
  32. FILGRASTIM [Concomitant]
     Active Substance: FILGRASTIM
     Dosage: UNK
     Dates: start: 20220814, end: 20220815
  33. FILGRASTIM [Concomitant]
     Active Substance: FILGRASTIM
     Dosage: UNK
     Dates: start: 20220906, end: 20220906
  34. FILGRASTIM [Concomitant]
     Active Substance: FILGRASTIM
     Dosage: UNK
     Dates: start: 20220925, end: 20220928
  35. FILGRASTIM [Concomitant]
     Active Substance: FILGRASTIM
     Dosage: UNK
     Dates: start: 20220929, end: 20221004
  36. AZITHROMYCIN [Concomitant]
     Active Substance: AZITHROMYCIN
     Dosage: UNK
     Dates: start: 20220927, end: 20220929
  37. CEFIDEROCOL [Concomitant]
     Active Substance: CEFIDEROCOL
     Indication: Enterobacter infection
     Dosage: UNK
     Dates: start: 20221013
  38. LINEZOLID [Concomitant]
     Active Substance: LINEZOLID
     Dosage: UNK
     Dates: start: 20220929, end: 20221004
  39. ALDACTONE [Concomitant]
     Active Substance: SPIRONOLACTONE
     Indication: Oedema peripheral
     Dosage: 100 MG
     Dates: start: 20220806, end: 20220806
  40. METRONIDAZOLE [Concomitant]
     Active Substance: METRONIDAZOLE
     Indication: Back pain
     Dosage: UNK
     Dates: start: 20220902, end: 20220912
  41. DEXAMETHASONE [Concomitant]
     Active Substance: DEXAMETHASONE
     Indication: Pyrexia
     Dosage: UNK
     Dates: start: 20220824, end: 20220825
  42. PANTOPRAZOLE [Concomitant]
     Active Substance: PANTOPRAZOLE
     Dosage: 40 MG
     Dates: start: 20220629, end: 20220629
  43. PANTOPRAZOLE [Concomitant]
     Active Substance: PANTOPRAZOLE
     Dosage: 40 MG
     Dates: start: 20220707, end: 20220707
  44. PANTOPRAZOLE [Concomitant]
     Active Substance: PANTOPRAZOLE
     Dosage: 40 MG
     Dates: start: 20220714, end: 20220714
  45. PANTOPRAZOLE [Concomitant]
     Active Substance: PANTOPRAZOLE
     Dosage: 40 MG
     Dates: start: 20220804, end: 20220804
  46. CALCIUM GLUCONATE [Concomitant]
     Active Substance: CALCIUM GLUCONATE
     Indication: Hypocalcaemia
     Dosage: UNK
     Dates: start: 20220811, end: 20220815
  47. PIPERACILLIN SODIUM\TAZOBACTAM SODIUM [Concomitant]
     Active Substance: PIPERACILLIN SODIUM\TAZOBACTAM SODIUM
     Dosage: UNK
     Dates: start: 20220715, end: 20220718
  48. ATORVASTATIN [Concomitant]
     Active Substance: ATORVASTATIN
     Dosage: UNK
     Dates: start: 2012, end: 20221025
  49. MEROPENEM [Concomitant]
     Active Substance: MEROPENEM
     Indication: Back pain
     Dosage: 1.5 G
     Dates: start: 20220902, end: 20220913
  50. LAMIVUDINE [Concomitant]
     Active Substance: LAMIVUDINE
     Dosage: 100 MG
     Dates: start: 20220513, end: 20221025
  51. TORADOL [Concomitant]
     Active Substance: KETOROLAC TROMETHAMINE
     Indication: Back pain
     Dosage: UNK
     Dates: start: 20220831, end: 20220904
  52. TORADOL [Concomitant]
     Active Substance: KETOROLAC TROMETHAMINE
     Dosage: UNK
     Dates: start: 20220906, end: 20220906
  53. POLATUZUMAB VEDOTIN [Concomitant]
     Active Substance: POLATUZUMAB VEDOTIN
     Indication: Diffuse large B-cell lymphoma stage IV
     Dosage: 120 MG; ON 07/JUL/2022 AT 05:45 PM TO 06:15 PM, SHE RECEIVED MOST RECENT DOSE 120 MG OF STUDY DRUG P
     Dates: start: 20220527
  54. POLATUZUMAB VEDOTIN [Concomitant]
     Active Substance: POLATUZUMAB VEDOTIN
     Dosage: UNK
  55. POLATUZUMAB VEDOTIN [Concomitant]
     Active Substance: POLATUZUMAB VEDOTIN
     Dosage: UNK
  56. LINEZOLID [Concomitant]
     Active Substance: LINEZOLID
     Dosage: 600 MG
     Dates: start: 20220922, end: 20220927
  57. LEVOFLOXACIN [Concomitant]
     Active Substance: LEVOFLOXACIN
     Dosage: 500 MG
     Dates: start: 20220715, end: 20220718
  58. MAGNESIUM SULFATE [Concomitant]
     Active Substance: MAGNESIUM SULFATE
     Indication: Oedema peripheral
     Dosage: UNK
     Dates: start: 20220812, end: 20220812
  59. CHLORPHENIRAMINE [Concomitant]
     Active Substance: CHLORPHENIRAMINE
     Dosage: 5 MG
     Dates: start: 20220629, end: 20220629
  60. CHLORPHENIRAMINE [Concomitant]
     Active Substance: CHLORPHENIRAMINE
     Dosage: 10 MG
     Dates: start: 20220707, end: 20220707
  61. CHLORPHENIRAMINE [Concomitant]
     Active Substance: CHLORPHENIRAMINE
     Dosage: 5 MG
     Dates: start: 20220714, end: 20220714
  62. CHLORPHENIRAMINE [Concomitant]
     Active Substance: CHLORPHENIRAMINE
     Dosage: 5 MG
     Dates: start: 20220804, end: 20220804
  63. CHLORPHENIRAMINE [Concomitant]
     Active Substance: CHLORPHENIRAMINE
     Dosage: 5 MG
     Dates: start: 20220812, end: 20220812
  64. CHLORPHENIRAMINE [Concomitant]
     Active Substance: CHLORPHENIRAMINE
     Dosage: 5 MG
     Dates: start: 20220829, end: 20220829
  65. CHLORPHENIRAMINE [Concomitant]
     Active Substance: CHLORPHENIRAMINE
     Dosage: 5 MG
     Dates: start: 20220905, end: 20220905
  66. CHLORPHENIRAMINE [Concomitant]
     Active Substance: CHLORPHENIRAMINE
     Dosage: 5 MG
     Dates: start: 20220921, end: 20220921
  67. POTASSIUM ASPARTATE [Concomitant]
     Active Substance: POTASSIUM ASPARTATE
     Indication: Hypokalaemia
     Dosage: 60 MEQ
     Dates: start: 20220811, end: 20220812
  68. DEXAMETHASONE [Concomitant]
     Active Substance: DEXAMETHASONE
     Dosage: 20 MG
     Dates: start: 20220629, end: 20220629
  69. DEXAMETHASONE [Concomitant]
     Active Substance: DEXAMETHASONE
     Dosage: 20 MG
     Dates: start: 20220714, end: 20220714
  70. MEROPENEM [Concomitant]
     Active Substance: MEROPENEM
     Dosage: 1.5 G
     Dates: start: 20220922, end: 20220927
  71. MEROPENEM [Concomitant]
     Active Substance: MEROPENEM
     Dosage: 1.5 G
     Dates: start: 20220929, end: 20221004
  72. MYCOSTATIN [Concomitant]
     Active Substance: NYSTATIN
     Dosage: UNK
     Dates: start: 20220531, end: 20221025
  73. ACYCLOVIR [Concomitant]
     Active Substance: ACYCLOVIR
     Dosage: 400 MG, EVERY 0.5/DAY
     Dates: start: 20220601, end: 20221025
  74. KETOROLAC [Concomitant]
     Active Substance: KETOROLAC TROMETHAMINE
     Indication: Back pain
     Dosage: 30 MG
     Dates: start: 20220831, end: 20220831
  75. CEFTRIAXONE [Concomitant]
     Active Substance: CEFTRIAXONE
     Dosage: 2 G
     Dates: start: 20220927, end: 20220928
  76. CEFTRIAXONE [Concomitant]
     Active Substance: CEFTRIAXONE
     Dosage: 2 G
     Dates: start: 20221004, end: 20221010
  77. ENOXAPARIN SODIUM [Concomitant]
     Active Substance: ENOXAPARIN SODIUM
     Dosage: UNK
     Dates: start: 20220519, end: 20221025
  78. LASIX [Concomitant]
     Active Substance: FUROSEMIDE
     Indication: Oedema peripheral
     Dosage: UNK
     Dates: start: 20220806, end: 20220806
  79. TAZOBACTAM [Concomitant]
     Active Substance: TAZOBACTAM
     Indication: Stenotrophomonas infection
     Dosage: UNK
     Dates: start: 20221011, end: 20221013
  80. HUMAN RED BLOOD CELL [Concomitant]
     Active Substance: HUMAN RED BLOOD CELL
     Indication: Anaemia
     Dosage: UNK
     Dates: start: 20220811, end: 20220811

REACTIONS (3)
  - Death [Fatal]
  - Pneumonitis [Recovered/Resolved]
  - Pneumonitis [Not Recovered/Not Resolved]

NARRATIVE: CASE EVENT DATE: 20220728
